FAERS Safety Report 10784405 (Version 1)
Quarter: 2015Q1

REPORT INFORMATION
  Report Type: Spontaneous
  Country: US (occurrence: None)
  Receive Date: 20150209
  Receipt Date: 20150209
  Transmission Date: 20150721
  Serious: No
  Sender: FDA-Public Use
  Company Number: None

PATIENT

DRUGS (2)
  1. OXYCODONE [Suspect]
     Active Substance: OXYCODONE
  2. PEPCID [Suspect]
     Active Substance: FAMOTIDINE

REACTIONS (1)
  - Product barcode issue [None]

NARRATIVE: CASE EVENT DATE: 2014
